FAERS Safety Report 8156895 (Version 2)
Quarter: 2016Q2

REPORT INFORMATION
  Report Type: Spontaneous
  Country: US (occurrence: US)
  Receive Date: 20110926
  Receipt Date: 20160602
  Transmission Date: 20160815
  Serious: Yes (Death, Other)
  Sender: FDA-Public Use
  Company Number: US-PURDUE-USA-2010-0044603

PATIENT
  Age: 14 Year
  Sex: Male
  Weight: 86.17 kg

DRUGS (2)
  1. OXYCODONE HYDROCHLORIDE (SIMILAR TO NDA 20-553) [Suspect]
     Active Substance: OXYCODONE HYDROCHLORIDE
     Indication: KNEE OPERATION
     Dosage: 5 MG, Q3H
     Route: 048
     Dates: start: 20081216
  2. FENTANYL. [Suspect]
     Active Substance: FENTANYL
     Indication: PROCEDURAL PAIN
     Route: 062

REACTIONS (8)
  - Ventricular hypertrophy [Unknown]
  - Pain [Unknown]
  - Insomnia [Unknown]
  - Cardiac disorder [Unknown]
  - Pulmonary embolism [Unknown]
  - Nausea [Unknown]
  - Drug ineffective [Unknown]
  - Toxicity to various agents [Fatal]

NARRATIVE: CASE EVENT DATE: 20081217
